FAERS Safety Report 12182645 (Version 1)
Quarter: 2016Q1

REPORT INFORMATION
  Report Type: Spontaneous
  Country: None (occurrence: None)
  Receive Date: 20160315
  Receipt Date: 20160315
  Transmission Date: 20160526
  Serious: Yes (Other)
  Sender: FDA-Public Use
  Company Number: None

PATIENT
  Age: 31 Year

DRUGS (1)
  1. MURINE EARWAX REMOVAL SYSTEM MURINE [Suspect]
     Active Substance: CARBAMIDE PEROXIDE
     Indication: EAR DISORDER
     Dosage: 5-10 DROPS TWICE DAILY INTO THE EAR
     Dates: start: 20160312

REACTIONS (2)
  - Vertigo [None]
  - Pain [None]

NARRATIVE: CASE EVENT DATE: 20160312
